FAERS Safety Report 25220081 (Version 4)
Quarter: 2025Q2

REPORT INFORMATION
  Report Type: Report from Study
  Country: US (occurrence: US)
  Receive Date: 20250421
  Receipt Date: 20250602
  Transmission Date: 20250717
  Serious: Yes (Other)
  Sender: DECIPHERA PHARMACEUTICALS
  Company Number: US-DECIPHERA PHARMACEUTICALS LLC-2025US000336

PATIENT
  Age: 42 Year
  Sex: Female

DRUGS (3)
  1. ROMVIMZA [Suspect]
     Active Substance: VIMSELTINIB
     Indication: Connective tissue neoplasm
     Dosage: 30 MILLIGRAM, TWICE WEEKLY
     Route: 048
     Dates: start: 20250331
  2. ROMVIMZA [Suspect]
     Active Substance: VIMSELTINIB
     Indication: Soft tissue neoplasm
  3. ROMVIMZA [Suspect]
     Active Substance: VIMSELTINIB
     Indication: Giant cell tumour of tendon sheath

REACTIONS (10)
  - Blood creatine phosphokinase increased [Unknown]
  - Regurgitation [Unknown]
  - Headache [Unknown]
  - Heart rate increased [Unknown]
  - Eye oedema [Not Recovered/Not Resolved]
  - Oedema peripheral [Unknown]
  - Fatigue [Unknown]
  - Vision blurred [Unknown]
  - Rash [Not Recovered/Not Resolved]
  - Face oedema [Not Recovered/Not Resolved]

NARRATIVE: CASE EVENT DATE: 20250101
